FAERS Safety Report 15296244 (Version 1)
Quarter: 2018Q3

REPORT INFORMATION
  Report Type: Spontaneous
  Country: CZ (occurrence: CZ)
  Receive Date: 20180820
  Receipt Date: 20180820
  Transmission Date: 20181010
  Serious: Yes (Death, Other)
  Sender: FDA-Public Use
  Company Number: CZ-ACCORD-070880

PATIENT
  Age: 59 Year
  Sex: Male

DRUGS (7)
  1. PANITUMUMAB [Suspect]
     Active Substance: PANITUMUMAB
     Indication: COLORECTAL CANCER METASTATIC
  2. BEVACIZUMAB. [Concomitant]
     Active Substance: BEVACIZUMAB
     Indication: RECTAL ADENOCARCINOMA
     Dosage: ALSO RECEIVED FROM AUG?2015 UNTIL APR?2016
     Dates: start: 201501
  3. IRINOTECAN [Suspect]
     Active Substance: IRINOTECAN
     Indication: COLORECTAL CANCER METASTATIC
     Dosage: FOLFIRI
  4. OXALIPLATIN. [Suspect]
     Active Substance: OXALIPLATIN
     Indication: RECTAL ADENOCARCINOMA
     Dosage: 12 CYCLE OF FOLFOX
     Dates: start: 201501
  5. FOLINIC ACID [Suspect]
     Active Substance: LEUCOVORIN
     Indication: RECTAL ADENOCARCINOMA
     Dosage: 12 CYCLE OF FOLFOX, FOLFIRI
     Dates: start: 201501
  6. CAPECITABINE. [Concomitant]
     Active Substance: CAPECITABINE
     Dates: start: 201508, end: 201604
  7. FLUOROURACIL. [Suspect]
     Active Substance: FLUOROURACIL
     Indication: RECTAL ADENOCARCINOMA
     Dosage: 12 CYCLE OF FOLFOX, FOLFIRI
     Dates: start: 201501

REACTIONS (5)
  - Stomatitis [Unknown]
  - Conjunctivitis [Unknown]
  - Diarrhoea [Unknown]
  - Respiratory tract infection [Unknown]
  - Photophobia [Unknown]
